FAERS Safety Report 5102990-0 (Version None)
Quarter: 2006Q3

REPORT INFORMATION
  Report Type: 
  Country: None (occurrence: None)
  Receive Date: 20060912
  Receipt Date: 20060607
  Transmission Date: 20061208
  Serious: Yes (Hospitalization)
  Sender: FDA-Public Use
  Company Number: FR-ABBOTT-06P-056-0335518-00

PATIENT
  Age: 36 Year
  Sex: Male
  Weight: 87 kg

DRUGS (19)
  1. KALETRA [Suspect]
     Indication: HIV INFECTION
     Route: 048
     Dates: end: 20060401
  2. KALETRA [Suspect]
     Dates: start: 20060417
  3. VINBLASTINE [Interacting]
     Indication: HODGKIN'S DISEASE
     Route: 042
     Dates: start: 20060224
  4. VINBLASTINE [Interacting]
     Dates: end: 20060227
  5. BLEOMYCIN [Concomitant]
     Indication: HODGKIN'S DISEASE
     Route: 042
     Dates: start: 20060224, end: 20060227
  6. DOLASETRON [Concomitant]
     Indication: HODGKIN'S DISEASE
     Route: 042
     Dates: start: 20060224, end: 20060227
  7. DOXORUBICIN HCL [Concomitant]
     Indication: HODGKIN'S DISEASE
     Route: 042
     Dates: start: 20060224, end: 20060227
  8. DACARBAZINE [Concomitant]
     Indication: HODGKIN'S DISEASE
     Route: 042
     Dates: start: 20060224, end: 20060227
  9. PENTAMIDINE ISETHIONATE [Concomitant]
     Indication: ANTIBIOTIC PROPHYLAXIS
  10. CLINDAMYCIN [Concomitant]
     Indication: ANTIBIOTIC PROPHYLAXIS
  11. PYRIMETHAMINE TAB [Concomitant]
     Indication: ANTIBIOTIC PROPHYLAXIS
  12. LAMIVUDINE [Concomitant]
     Indication: HIV INFECTION
  13. TENOFOVIR [Concomitant]
     Indication: HIV INFECTION
  14. ENFUVIRTIDE [Concomitant]
     Indication: HIV INFECTION
  15. CHEMOTHERAPY [Concomitant]
     Indication: DRUG USE FOR UNKNOWN INDICATION
     Dates: start: 20060224
  16. CHEMOTHERAPY [Concomitant]
     Dates: start: 20060413
  17. CHEMOTHERAPY [Concomitant]
     Dates: start: 20060415
  18. PREDNISONE TAB [Concomitant]
     Indication: DRUG USE FOR UNKNOWN INDICATION
     Dates: start: 20060224
  19. ADRIAMYCIN PFS [Concomitant]
     Indication: DRUG USE FOR UNKNOWN INDICATION
     Dates: start: 20060224

REACTIONS (2)
  - APLASIA [None]
  - DRUG INTERACTION [None]
